FAERS Safety Report 12651488 (Version 5)
Quarter: 2018Q1

REPORT INFORMATION
  Report Type: Report from Study
  Country: DE (occurrence: DE)
  Receive Date: 20160815
  Receipt Date: 20180221
  Transmission Date: 20180508
  Serious: Yes (Life-Threatening, Hospitalization)
  Sender: FDA-Public Use
  Company Number: PHHO2016DE011809

PATIENT
  Age: 70 Year
  Sex: Male
  Weight: 81 kg

DRUGS (7)
  1. MYFORTIC [Concomitant]
     Active Substance: MYCOPHENOLATE SODIUM
     Indication: RENAL TRANSPLANT
     Dosage: 180 MG, TID
     Route: 048
     Dates: start: 20150402, end: 20160624
  2. EVEROLIMUS. [Suspect]
     Active Substance: EVEROLIMUS
     Dosage: 6 MG, UNK
     Route: 048
     Dates: start: 20150401, end: 20150401
  3. NEORAL [Suspect]
     Active Substance: CYCLOSPORINE
     Indication: RENAL TRANSPLANT
     Dosage: 100 MG, BID
     Route: 048
     Dates: start: 20150402
  4. EVEROLIMUS. [Suspect]
     Active Substance: EVEROLIMUS
     Indication: RENAL TRANSPLANT
     Dosage: 1.5 MG, UNK
     Route: 048
     Dates: start: 20150210
  5. MYFORTIC [Concomitant]
     Active Substance: MYCOPHENOLATE SODIUM
     Dosage: 180 MG, TID
     Route: 048
     Dates: start: 20160720
  6. NEORAL [Suspect]
     Active Substance: CYCLOSPORINE
     Dosage: 75 MG, BID
     Route: 048
     Dates: start: 20160720
  7. DECORTIN [Suspect]
     Active Substance: PREDNISONE
     Indication: RENAL TRANSPLANT
     Dosage: 5 MG, QD
     Route: 048
     Dates: start: 20150209

REACTIONS (2)
  - Cardiac arrest [Recovered/Resolved with Sequelae]
  - Renal transplant failure [Recovered/Resolved]

NARRATIVE: CASE EVENT DATE: 20160625
